FAERS Safety Report 7169883-9 (Version None)
Quarter: 2010Q4

REPORT INFORMATION
  Report Type: 
  Country: None (occurrence: None)
  Receive Date: 20101217
  Receipt Date: 20101213
  Transmission Date: 20110411
  Serious: Yes (Death)
  Sender: FDA-Public Use
  Company Number: PHHY2010JP82372

PATIENT
  Sex: Male

DRUGS (10)
  1. AFINITOR [Suspect]
     Indication: RENAL CELL CARCINOMA
     Dosage: 10 MG/ DAILY
     Route: 048
     Dates: start: 20100812
  2. MUCOSOLVAN [Concomitant]
     Indication: RENAL CELL CARCINOMA
     Dosage: 45 MG, UNK
     Route: 048
  3. OXYCONTIN [Concomitant]
     Dosage: 10 MG, UNK
     Route: 048
  4. LASIX [Concomitant]
     Dosage: 80 MG, UNK
     Route: 048
  5. BLOPRESS [Concomitant]
     Dosage: 8 MG, UNK
     Route: 048
  6. AMLODIN [Concomitant]
     Dosage: 5 MG, UNK
     Route: 048
  7. PURSENNID [Concomitant]
     Dosage: 24 MG, UNK
     Route: 048
  8. OPSO [Concomitant]
     Dosage: 10 MG, UNK
     Route: 048
  9. DUROTEP [Concomitant]
     Dosage: 1.4 MG, UNK
     Route: 062
  10. KETOPROFEN [Concomitant]
     Dosage: 40 MG, TID

REACTIONS (1)
  - MALIGNANT NEOPLASM PROGRESSION [None]
